FAERS Safety Report 15082252 (Version 5)
Quarter: 2019Q2

REPORT INFORMATION
  Report Type: Report from Study
  Country: NL (occurrence: NL)
  Receive Date: 20180628
  Receipt Date: 20190501
  Transmission Date: 20190711
  Serious: Yes (Other)
  Sender: FDA-Public Use
  Company Number: NL-AUROBINDO-AUR-APL-2016-11436

PATIENT

DRUGS (4)
  1. EZETIMIBE. [Suspect]
     Active Substance: EZETIMIBE
     Indication: PRODUCT USED FOR UNKNOWN INDICATION
     Dosage: 10 MG, ONCE A DAY
     Route: 065
  2. PRAVASTATIN TABLET [Suspect]
     Active Substance: PRAVASTATIN
     Dosage: 20 MILLIGRAM, ONCE A DAY (1 DF=10-20 MG)
     Route: 065
  3. PRAVASTATIN TABLET [Suspect]
     Active Substance: PRAVASTATIN
     Indication: HYPERTENSION
     Dosage: 10 MG, ONCE A DAY
     Route: 065
  4. EZETIMIBE. [Suspect]
     Active Substance: EZETIMIBE
     Dosage: 20 MILLIGRAM, ONCE A DAY, 20 MG/DAY
     Route: 065

REACTIONS (3)
  - Muscle rupture [Unknown]
  - Myalgia [Unknown]
  - Ligament rupture [Unknown]
